FAERS Safety Report 6271517-2 (Version None)
Quarter: 2009Q3

REPORT INFORMATION
  Report Type: 
  Country: None (occurrence: None)
  Receive Date: 20090717
  Receipt Date: 20090708
  Transmission Date: 20100115
  Serious: Yes (Other)
  Sender: FDA-Public Use
  Company Number: PHEH2009US03399

PATIENT
  Sex: Male

DRUGS (3)
  1. GENTEAL GEL (NVO) [Suspect]
     Indication: DRY EYE
  2. GENTEAL PM LUBRICANT EYE OINTMENT [Suspect]
  3. MONOPRIL [Suspect]

REACTIONS (4)
  - CORNEAL ABRASION [None]
  - EYE IRRITATION [None]
  - FOREIGN BODY SENSATION IN EYES [None]
  - LACRIMAL DISORDER [None]
